FAERS Safety Report 9452704 (Version 1)
Quarter: 2013Q3

REPORT INFORMATION
  Report Type: Spontaneous
  Country: PH (occurrence: PH)
  Receive Date: 20130812
  Receipt Date: 20130812
  Transmission Date: 20140515
  Serious: Yes (Death, Hospitalization)
  Sender: FDA-Public Use
  Company Number: PH-MERCK-1308PHL003425

PATIENT
  Age: 77 Year
  Sex: Male

DRUGS (1)
  1. JANUMET [Suspect]
     Dosage: ONE TABLET ONCE A DAY
     Route: 048

REACTIONS (2)
  - Wound [Fatal]
  - Inappropriate schedule of drug administration [Unknown]
